FAERS Safety Report 7608442-8 (Version None)
Quarter: 2011Q3

REPORT INFORMATION
  Report Type: 
  Country: None (occurrence: None)
  Receive Date: 20110713
  Receipt Date: 20110713
  Transmission Date: 20111222
  Serious: Yes (Hospitalization)
  Sender: FDA-Public Use
  Company Number: None

PATIENT
  Age: 53 Year
  Sex: Male

DRUGS (4)
  1. COZAAR [Concomitant]
  2. XELODA [Suspect]
     Indication: GASTRIC CANCER
     Dosage: 500MG BID PO
     Route: 048
     Dates: start: 20110501, end: 20110701
  3. XELODA [Suspect]
     Dosage: 150MG BID PO
     Route: 048
     Dates: start: 20110501, end: 20110701
  4. DEXAMETHASONE [Concomitant]

REACTIONS (3)
  - SYNCOPE [None]
  - DIARRHOEA [None]
  - BLOOD ELECTROLYTES DECREASED [None]
